FAERS Safety Report 21226165 (Version 1)
Quarter: 2022Q3

REPORT INFORMATION
  Report Type: Spontaneous
  Country: US (occurrence: US)
  Receive Date: 20220818
  Receipt Date: 20220818
  Transmission Date: 20221027
  Serious: No
  Sender: FDA-Public Use
  Company Number: US-CADILA HEALTHCARE LIMITED-US-ZYDUS-069821

PATIENT

DRUGS (2)
  1. OXYBUTYNIN CHLORIDE [Suspect]
     Active Substance: OXYBUTYNIN CHLORIDE
     Indication: Urinary incontinence
     Dosage: 10 MILLIGRAM, QD
     Route: 048
     Dates: start: 20210831, end: 20210904
  2. BUPROPION [Concomitant]
     Active Substance: BUPROPION
     Indication: Anxiety
     Dosage: UNK
     Route: 065

REACTIONS (6)
  - Chromaturia [Not Recovered/Not Resolved]
  - Dry mouth [Not Recovered/Not Resolved]
  - Thirst [Not Recovered/Not Resolved]
  - Dizziness [Not Recovered/Not Resolved]
  - Constipation [Not Recovered/Not Resolved]
  - Dehydration [Unknown]

NARRATIVE: CASE EVENT DATE: 20210901
